FAERS Safety Report 10030333 (Version 1)
Quarter: 2014Q1

REPORT INFORMATION
  Report Type: Spontaneous
  Country: US (occurrence: US)
  Receive Date: 20140323
  Receipt Date: 20140323
  Transmission Date: 20141002
  Serious: No
  Sender: FDA-Public Use
  Company Number: US-ALLERGAN-1307590US

PATIENT
  Sex: Female

DRUGS (4)
  1. LATISSE 0.03% [Suspect]
     Indication: GROWTH OF EYELASHES
     Dosage: UNK, QHS
     Route: 061
  2. LATISSE 0.03% [Suspect]
     Dosage: UNK, SINGLE
     Dates: start: 20130520, end: 20130520
  3. LATISSE 0.03% [Suspect]
     Dosage: UNK
     Route: 061
     Dates: start: 201301, end: 201305
  4. LATISSE 0.03% [Suspect]
     Dosage: UNK UNK, QHS
     Route: 061
     Dates: start: 201210, end: 201301

REACTIONS (8)
  - Accidental exposure to product [Unknown]
  - Wrong technique in drug usage process [Unknown]
  - Incorrect dose administered [Unknown]
  - Inappropriate schedule of drug administration [Unknown]
  - Wrong technique in drug usage process [Unknown]
  - Ocular hyperaemia [Recovering/Resolving]
  - Hair growth abnormal [Unknown]
  - Drug ineffective [Unknown]
